FAERS Safety Report 9012126 (Version 2)
Quarter: 2013Q1

REPORT INFORMATION
  Report Type: Spontaneous
  Country: US (occurrence: US)
  Receive Date: 20130114
  Receipt Date: 20130218
  Transmission Date: 20140127
  Serious: No
  Sender: FDA-Public Use
  Company Number: US-PFIZER INC-2013012885

PATIENT
  Age: 75 Year
  Sex: Female
  Weight: 66.21 kg

DRUGS (2)
  1. GLUCOTROL [Suspect]
     Dosage: UNK
  2. GLUCOTROL [Suspect]
     Dosage: 10 MG, UNK

REACTIONS (1)
  - No adverse event [Unknown]
